FAERS Safety Report 6750549-1 (Version None)
Quarter: 2010Q2

REPORT INFORMATION
  Report Type: 
  Country: None (occurrence: None)
  Receive Date: 20100528
  Receipt Date: 20100528
  Transmission Date: 20101027
  Serious: Yes (Hospitalization)
  Sender: FDA-Public Use
  Company Number: None

PATIENT
  Sex: Female
  Weight: 62.1 kg

DRUGS (3)
  1. CARBOPLATIN [Suspect]
     Dosage: 700 MG
     Dates: end: 20100513
  2. ERBITUX [Suspect]
     Dosage: 836 MG
     Dates: end: 20100520
  3. TAXOL [Suspect]
     Dosage: 334 MG
     Dates: end: 20100513

REACTIONS (9)
  - ABDOMINAL PAIN [None]
  - CHILLS [None]
  - CLOSTRIDIUM TEST POSITIVE [None]
  - DYSPNOEA [None]
  - HAEMOPTYSIS [None]
  - PRODUCTIVE COUGH [None]
  - PYREXIA [None]
  - STREPTOCOCCUS TEST POSITIVE [None]
  - TACHYCARDIA [None]
